FAERS Safety Report 4561737-7 (Version None)
Quarter: 2005Q1

REPORT INFORMATION
  Report Type: 
  Country: None (occurrence: None)
  Receive Date: 20050125
  Receipt Date: 20041115
  Transmission Date: 20050727
  Serious: Yes (Other)
  Sender: FDA-Public Use
  Company Number: 2004110653

PATIENT
  Sex: Female

DRUGS (6)
  1. CELEBREX [Suspect]
     Indication: ILL-DEFINED DISORDER
  2. TAMOXIFEN (TAMOXIFEN) [Concomitant]
  3. CLONAZEPAM [Concomitant]
  4. PANTOPRAZOLE (PANTOPRAZOLE) [Concomitant]
  5. OBETROL (AMFETAMINE ASPARTATE, AMFETAMINE SULFATE, DEXAMFETAMINE SACCH [Concomitant]
  6. LEVOTHYROXINE SODIUM [Concomitant]

REACTIONS (4)
  - BREAST CANCER FEMALE [None]
  - CATARACT OPERATION [None]
  - SPINAL FUSION SURGERY [None]
  - UMBILICAL HERNIA REPAIR [None]
